FAERS Safety Report 9285468 (Version 2)
Quarter: 2014Q2

REPORT INFORMATION
  Report Type: Spontaneous
  Country: US (occurrence: US)
  Receive Date: 20130513
  Receipt Date: 20140409
  Transmission Date: 20141212
  Serious: No
  Sender: FDA-Public Use
  Company Number: US-PFIZER INC-2013143110

PATIENT
  Age: 50 Year
  Sex: Female

DRUGS (11)
  1. TETRACYCLINE HCL [Suspect]
     Dosage: UNK
  2. ZITHROMAX [Suspect]
     Dosage: UNK
  3. LYRICA [Suspect]
     Dosage: UNK
  4. SPIRIVA [Suspect]
     Dosage: UNK
  5. AVELOX [Suspect]
     Dosage: UNK
  6. HYDROCODONE [Suspect]
     Dosage: UNK
  7. CODEINE [Suspect]
     Dosage: UNK
  8. BIAXIN [Suspect]
     Dosage: UNK
  9. VICODIN [Suspect]
     Dosage: UNK
  10. LANTUS [Suspect]
     Dosage: UNK
  11. CEPHALOSPORIN C [Suspect]
     Dosage: UNK

REACTIONS (1)
  - Drug hypersensitivity [Unknown]
